FAERS Safety Report 12950506 (Version 2)
Quarter: 2017Q1

REPORT INFORMATION
  Report Type: Spontaneous
  Country: FR (occurrence: FR)
  Receive Date: 20161116
  Receipt Date: 20170126
  Transmission Date: 20170428
  Serious: Yes (Hospitalization, Other)
  Sender: FDA-Public Use
  Company Number: FR-ELI_LILLY_AND_COMPANY-FR201611003462

PATIENT
  Age: 65 Year
  Sex: Male
  Weight: 58.8 kg

DRUGS (4)
  1. ZOLPIDEM [Suspect]
     Active Substance: ZOLPIDEM\ZOLPIDEM TARTRATE
     Indication: PRODUCT USED FOR UNKNOWN INDICATION
     Dosage: 10 MG, UNKNOWN
     Route: 065
  2. STILNOX [Concomitant]
     Active Substance: ZOLPIDEM TARTRATE
     Indication: INSOMNIA
     Dosage: 10 MG, QD
     Route: 065
     Dates: start: 20121214
  3. ZYPREXA [Suspect]
     Active Substance: OLANZAPINE
     Indication: SCHIZOPHRENIA
     Dosage: 30 MG, QD
     Route: 048
     Dates: start: 2007
  4. LEPTICURE [Concomitant]
     Active Substance: GABAPENTIN
     Indication: PRODUCT USED FOR UNKNOWN INDICATION
     Dosage: UNK, BID
     Route: 065

REACTIONS (16)
  - Blood pressure increased [Unknown]
  - Hyponatraemia [Recovered/Resolved]
  - Blood urea decreased [Unknown]
  - Red blood cell count decreased [Unknown]
  - Haemoglobin decreased [Unknown]
  - Blood chloride decreased [Unknown]
  - Seizure [Recovered/Resolved]
  - Blood creatinine decreased [Unknown]
  - Agitation [Unknown]
  - Vomiting [Recovered/Resolved]
  - Tachycardia [Unknown]
  - Psychomotor hyperactivity [Recovered/Resolved]
  - Dysarthria [Recovered/Resolved]
  - Haematocrit decreased [Unknown]
  - Loss of consciousness [Unknown]
  - Blood creatine phosphokinase increased [Unknown]

NARRATIVE: CASE EVENT DATE: 20160927
